FAERS Safety Report 7415907-0 (Version None)
Quarter: 2011Q2

REPORT INFORMATION
  Report Type: 
  Country: None (occurrence: None)
  Receive Date: 20110414
  Receipt Date: 20110405
  Transmission Date: 20111010
  Serious: Yes (Hospitalization)
  Sender: FDA-Public Use
  Company Number: US-CEPHALON-2011001642

PATIENT
  Sex: Male

DRUGS (7)
  1. PERPHENAZINE [Concomitant]
  2. DEPAKOTE ER [Concomitant]
     Dates: start: 20010101
  3. NUVIGIL [Suspect]
     Indication: SOMNOLENCE
     Route: 048
     Dates: start: 20090101
  4. ZYPREXA [Concomitant]
     Dates: start: 20060101
  5. LITHIUM [Concomitant]
  6. NUVIGIL [Suspect]
     Indication: DEPRESSION
  7. ELAVIL [Concomitant]

REACTIONS (1)
  - MANIA [None]
